FAERS Safety Report 13849043 (Version 2)
Quarter: 2017Q3

REPORT INFORMATION
  Report Type: Spontaneous
  Country: US (occurrence: US)
  Receive Date: 20170809
  Receipt Date: 20170809
  Transmission Date: 20171127
  Serious: Yes (Life-Threatening, Other)
  Sender: FDA-Public Use
  Company Number: US-CIPLA LTD.-2017US13659

PATIENT

DRUGS (1)
  1. AMLODIPINE [Suspect]
     Active Substance: AMLODIPINE BESYLATE
     Dosage: 10 MG, INTENTIONALLY INGESTED 20 TABLETS
     Route: 048

REACTIONS (4)
  - Intentional overdose [Unknown]
  - Hypotension [Unknown]
  - Tremor [Unknown]
  - Non-cardiogenic pulmonary oedema [Unknown]
